FAERS Safety Report 10334359 (Version 2)
Quarter: 2014Q3

REPORT INFORMATION
  Report Type: Spontaneous
  Country: US (occurrence: US)
  Receive Date: 20140723
  Receipt Date: 20140723
  Transmission Date: 20150326
  Serious: No
  Sender: FDA-Public Use
  Company Number: US-UNITED THERAPEUTICS-UTC-046027

PATIENT
  Sex: Female
  Weight: 58.9 kg

DRUGS (2)
  1. REMODULIN [Suspect]
     Active Substance: TREPROSTINIL
     Route: 041
     Dates: start: 20111001
  2. REMODULIN [Suspect]
     Active Substance: TREPROSTINIL
     Route: 041

REACTIONS (3)
  - Drug dose omission [Unknown]
  - Fluid retention [Unknown]
  - Device dislocation [Unknown]
